FAERS Safety Report 5649767-5 (Version None)
Quarter: 2008Q1

REPORT INFORMATION
  Report Type: 
  Country: None (occurrence: None)
  Receive Date: 20080304
  Receipt Date: 20080221
  Transmission Date: 20080703
  Serious: Yes (Other)
  Sender: FDA-Public Use
  Company Number: US-PFIZER INC-2008017379

PATIENT
  Sex: Female
  Weight: 95 kg

DRUGS (5)
  1. LYRICA [Suspect]
     Indication: FIBROMYALGIA
  2. IRON [Concomitant]
  3. VITAMIN D [Concomitant]
  4. CELEXA [Concomitant]
  5. TRAMADOL HCL [Concomitant]

REACTIONS (4)
  - DYSPNOEA [None]
  - EYE SWELLING [None]
  - SWELLING FACE [None]
  - WHEEZING [None]
